FAERS Safety Report 4878388-7 (Version None)
Quarter: 2005Q4

REPORT INFORMATION
  Report Type: 
  Country: None (occurrence: None)
  Receive Date: 20051212
  Receipt Date: 20050823
  Transmission Date: 20060501
  Serious: Yes (Hospitalization, Other)
  Sender: FDA-Public Use
  Company Number: 2005-01464

PATIENT
  Age: 68 Year
  Sex: Male

DRUGS (18)
  1. VELCADE [Suspect]
     Indication: MULTIPLE MYELOMA
     Dosage: 1.30 MG/M2, INTRAVENOUS
     Route: 042
     Dates: start: 20040617, end: 20040713
  2. HYDROCHLORIDE (HYDROCHLOROTHIAZIDE) [Concomitant]
  3. ALLOPURINOL [Concomitant]
  4. ATENOLOL [Concomitant]
  5. LOVASTATIN [Concomitant]
  6. DIPYRIDAMOLE [Concomitant]
  7. ISOSORBIDE (ISOSORBIDE) [Concomitant]
  8. LISINOPRIL [Concomitant]
  9. POTASSIUM CHLORIDE [Concomitant]
  10. METFORMIN HCL [Concomitant]
  11. ASPIRIN [Concomitant]
  12. ACIPHEX [Concomitant]
  13. VITAMIN C (ASCORBIC ACID) [Concomitant]
  14. CENTRUM (VITAMINS NOS, MINERALS NOS) [Concomitant]
  15. VITAMIN E/0011/05/(TOCOPHEROL) [Concomitant]
  16. BETACAROTENE (BETACAROTENE) [Concomitant]
  17. FOLIC ACID [Concomitant]
  18. FISH OIL (FISH OIL) [Concomitant]

REACTIONS (3)
  - CHEST PAIN [None]
  - DYSPNOEA [None]
  - RENAL FAILURE [None]
